FAERS Safety Report 5815106-X (Version None)
Quarter: 2008Q3

REPORT INFORMATION
  Report Type: 
  Country: None (occurrence: None)
  Receive Date: 20080718
  Receipt Date: 20080708
  Transmission Date: 20090109
  Serious: Yes (Hospitalization, Other)
  Sender: FDA-Public Use
  Company Number: US-MERCK-0807USA01326

PATIENT
  Age: 57 Year
  Sex: Female
  Weight: 63 kg

DRUGS (3)
  1. FOSAMAX [Suspect]
     Indication: RESORPTION BONE INCREASED
     Route: 048
     Dates: start: 20060401
  2. [THERAPY UNSPECIFIED] [Concomitant]
     Route: 065
  3. BONIVA [Suspect]
     Route: 048
     Dates: start: 20060801, end: 20070701

REACTIONS (9)
  - ARTHRALGIA [None]
  - BONE PAIN [None]
  - CEREBROVASCULAR ACCIDENT [None]
  - DEPRESSION [None]
  - DRUG INEFFECTIVE [None]
  - FATIGUE [None]
  - MIGRAINE [None]
  - MYALGIA [None]
  - VERTIGO [None]
